FAERS Safety Report 18146510 (Version 1)
Quarter: 2020Q3

REPORT INFORMATION
  Report Type: Spontaneous
  Country: US (occurrence: US)
  Receive Date: 20200813
  Receipt Date: 20200813
  Transmission Date: 20201103
  Serious: No
  Sender: FDA-Public Use
  Company Number: US-LEXICON PHARMACEUTICALS, INC-20-1606-00618

PATIENT
  Age: 47 Year
  Sex: Female

DRUGS (11)
  1. HYDROCODONE BITARTRATE. [Concomitant]
     Active Substance: HYDROCODONE BITARTRATE
  2. XERMELO [Suspect]
     Active Substance: TELOTRISTAT ETHYL
     Indication: CARCINOID TUMOUR
     Dates: start: 20190823
  3. ZOFRAN [Concomitant]
     Active Substance: ONDANSETRON HYDROCHLORIDE
  4. DOXAZOSIN MESYLATE. [Concomitant]
     Active Substance: DOXAZOSIN MESYLATE
  5. LEVOTHYROXINE SODIUM. [Concomitant]
     Active Substance: LEVOTHYROXINE SODIUM
  6. LYRICA [Concomitant]
     Active Substance: PREGABALIN
  7. FUROSEMIDE. [Concomitant]
     Active Substance: FUROSEMIDE
  8. REXULTI [Concomitant]
     Active Substance: BREXPIPRAZOLE
  9. DIAZEPAM. [Concomitant]
     Active Substance: DIAZEPAM
  10. XARELTO [Concomitant]
     Active Substance: RIVAROXABAN
  11. CYCLOBENZAPRINE. [Concomitant]
     Active Substance: CYCLOBENZAPRINE

REACTIONS (1)
  - Malaise [Unknown]
